FAERS Safety Report 20436745 (Version 2)
Quarter: 2022Q1

REPORT INFORMATION
  Report Type: Report from Study
  Country: BR (occurrence: BR)
  Receive Date: 20220207
  Receipt Date: 20220214
  Transmission Date: 20220424
  Serious: Yes (Death, Hospitalization)
  Sender: FDA-Public Use
  Company Number: BR-NOVARTISPH-NVSC2022BR025247

PATIENT
  Sex: Female
  Weight: 58 kg

DRUGS (1)
  1. CRIZANLIZUMAB [Suspect]
     Active Substance: CRIZANLIZUMAB
     Indication: Sickle cell disease
     Dosage: 5 MG/KG
     Route: 042
     Dates: start: 20210204, end: 20220113

REACTIONS (5)
  - Acute respiratory failure [Fatal]
  - Nervous system disorder [Fatal]
  - Cerebrovascular accident [Fatal]
  - COVID-19 [Unknown]
  - Influenza [Unknown]
